FAERS Safety Report 5987103-5 (Version None)
Quarter: 2008Q4

REPORT INFORMATION
  Report Type: 
  Country: None (occurrence: None)
  Receive Date: 20081209
  Receipt Date: 20081201
  Transmission Date: 20090506
  Serious: Yes (Life-Threatening, Hospitalization, Other)
  Sender: FDA-Public Use
  Company Number: JP-ABBOTT-08P-087-0481099-00

PATIENT
  Sex: Female

DRUGS (28)
  1. EURODIN [Suspect]
     Indication: INSOMNIA
     Route: 048
     Dates: start: 20080516, end: 20080518
  2. EURODIN [Suspect]
     Route: 048
     Dates: start: 20080525, end: 20080528
  3. EURODIN [Suspect]
     Route: 048
     Dates: start: 20080602, end: 20080906
  4. EURODIN [Suspect]
     Route: 048
     Dates: start: 20080909, end: 20080910
  5. LOXOPROFEN [Suspect]
     Indication: DRUG USE FOR UNKNOWN INDICATION
     Route: 048
  6. REBAMIPIDE [Suspect]
     Indication: DRUG USE FOR UNKNOWN INDICATION
     Route: 048
  7. VOGLIBOSE [Concomitant]
     Indication: DRUG USE FOR UNKNOWN INDICATION
     Route: 048
     Dates: start: 20080530, end: 20080924
  8. NICORANDIL [Concomitant]
     Indication: DRUG USE FOR UNKNOWN INDICATION
     Route: 048
     Dates: start: 20080509, end: 20080922
  9. ACETYLSALICYLIC ACID SRT [Concomitant]
     Indication: DRUG USE FOR UNKNOWN INDICATION
     Route: 048
     Dates: start: 20080509, end: 20080922
  10. ROSUVASTATIN [Concomitant]
     Indication: DRUG USE FOR UNKNOWN INDICATION
     Route: 048
     Dates: start: 20080509, end: 20080516
  11. FUROSEMIDE [Concomitant]
     Indication: DRUG USE FOR UNKNOWN INDICATION
     Route: 048
     Dates: start: 20080520, end: 20080908
  12. SPIRONOLACTONE [Concomitant]
     Indication: DRUG USE FOR UNKNOWN INDICATION
     Route: 048
     Dates: start: 20080520, end: 20080908
  13. RABEPRAZOLE SODIUM [Concomitant]
     Indication: DRUG USE FOR UNKNOWN INDICATION
     Route: 048
     Dates: start: 20080520, end: 20080929
  14. FERROUS GLUCONATE [Concomitant]
     Indication: DRUG USE FOR UNKNOWN INDICATION
     Route: 048
     Dates: start: 20080524, end: 20080601
  15. CINAL [Concomitant]
     Indication: DRUG USE FOR UNKNOWN INDICATION
     Route: 048
     Dates: start: 20080524, end: 20080603
  16. NOVOLIN 50R FLEXPEN [Concomitant]
     Indication: DRUG USE FOR UNKNOWN INDICATION
     Dosage: 30 UT IN MORNING, 6 UT IN EVENING
     Route: 058
     Dates: start: 20080509, end: 20080519
  17. INSULIN HUMAN [Concomitant]
     Indication: DRUG USE FOR UNKNOWN INDICATION
     Dosage: ADJUSTED DEPENDING ON GLYCEMIC LEVEL
     Route: 058
     Dates: start: 20080515, end: 20080524
  18. SODIUM PICOSULFATE [Concomitant]
     Indication: CONSTIPATION
     Dosage: AS REQUIRED
     Route: 048
     Dates: start: 20080521
  19. INSULIN GLARGINE [Concomitant]
     Indication: DRUG USE FOR UNKNOWN INDICATION
     Route: 058
     Dates: start: 20080524
  20. INSULIN [Concomitant]
     Indication: DRUG USE FOR UNKNOWN INDICATION
     Dosage: 10 UT IN MORNING, 10 UT AT LUNCHTIME, 8 UT IN EVENING
     Route: 058
     Dates: start: 20080525
  21. CEFDINIR [Concomitant]
     Indication: DRUG USE FOR UNKNOWN INDICATION
     Route: 048
     Dates: start: 20080509, end: 20080511
  22. CEFDINIR [Concomitant]
     Route: 048
     Dates: start: 20080611, end: 20080613
  23. LEVOFLOXACIN [Concomitant]
     Indication: DRUG USE FOR UNKNOWN INDICATION
     Route: 048
     Dates: start: 20080623, end: 20080722
  24. EPALRESTAT [Concomitant]
     Indication: DRUG USE FOR UNKNOWN INDICATION
     Route: 048
     Dates: start: 20080715, end: 20080924
  25. LOXOPROFEN [Concomitant]
     Dosage: AS REQUIRED
     Route: 048
     Dates: start: 20080815, end: 20080819
  26. REBAMIPIDE [Concomitant]
     Route: 048
     Dates: start: 20080815, end: 20080819
  27. MAGNESIUM OXIDE [Concomitant]
     Indication: DRUG USE FOR UNKNOWN INDICATION
     Route: 048
     Dates: start: 20080829, end: 20080910
  28. SENNA ALEXANDRINA LEAF [Concomitant]
     Indication: DRUG USE FOR UNKNOWN INDICATION
     Route: 048
     Dates: start: 20080904

REACTIONS (14)
  - ALANINE AMINOTRANSFERASE INCREASED [None]
  - ASCITES [None]
  - ASPARTATE AMINOTRANSFERASE INCREASED [None]
  - BLOOD BILIRUBIN INCREASED [None]
  - DYSARTHRIA [None]
  - HEPATIC ATROPHY [None]
  - HEPATIC ENCEPHALOPATHY [None]
  - HEPATITIS ACUTE [None]
  - HYPERAMMONAEMIA [None]
  - INSOMNIA [None]
  - LIVER DISORDER [None]
  - MALAISE [None]
  - POSTOPERATIVE WOUND INFECTION [None]
  - PROTHROMBIN TIME SHORTENED [None]
